FAERS Safety Report 7341183-3 (Version None)
Quarter: 2011Q1

REPORT INFORMATION
  Report Type: 
  Country: None (occurrence: None)
  Receive Date: 20110309
  Receipt Date: 20110303
  Transmission Date: 20110831
  Serious: Yes (Disabling)
  Sender: FDA-Public Use
  Company Number: B0704133A

PATIENT
  Age: 62 Year
  Sex: Female

DRUGS (2)
  1. TYKERB [Suspect]
     Indication: BREAST CANCER
     Dosage: 1250MG PER DAY
     Route: 048
     Dates: start: 20101118, end: 20110113
  2. XELODA [Suspect]
     Dosage: 3000MG PER DAY
     Route: 048
     Dates: start: 20101118

REACTIONS (4)
  - ASTHENIA [None]
  - MOVEMENT DISORDER [None]
  - ATAXIA [None]
  - DYSARTHRIA [None]
